FAERS Safety Report 8634149 (Version 5)
Quarter: 2013Q1

REPORT INFORMATION
  Report Type: Spontaneous
  Country: US (occurrence: US)
  Receive Date: 20120626
  Receipt Date: 20130129
  Transmission Date: 20140127
  Serious: No
  Sender: FDA-Public Use
  Company Number: US-PFIZER INC-2012151108

PATIENT
  Age: 79 Year
  Sex: Male
  Weight: 84.35 kg

DRUGS (15)
  1. TIKOSYN [Suspect]
     Indication: ARRHYTHMIA
     Dosage: 250 UG, UNK
     Route: 048
  2. TIKOSYN [Suspect]
     Indication: ATRIAL FIBRILLATION
  3. ACETYLSALICYLIC ACID [Concomitant]
     Dosage: 81 MG, DAILY
  4. CARVEDILOL [Concomitant]
     Dosage: 12.5 MG, 2X/DAY
  5. VITAMIN D [Concomitant]
     Dosage: UNK
  6. WARFARIN [Concomitant]
     Dosage: 5 MG, DAILY
  7. VITAMIN B12 [Concomitant]
     Dosage: UNK, DAILY
  8. DOXAZOSIN [Concomitant]
     Dosage: 2 MG, DAILY
  9. ENALAPRIL [Concomitant]
     Dosage: 2.5 MG, 2X/DAY
  10. POTASSIUM [Concomitant]
     Dosage: 20 MG, AS NEEDED
  11. LASIX [Concomitant]
     Dosage: 40 MG, AS NEEDED
  12. OMEPRAZOLE [Concomitant]
     Dosage: 20 MG, DAILY
  13. PRAVASTATIN [Concomitant]
     Dosage: 40 MG, DAILY
  14. IRON [Concomitant]
     Dosage: 65 MG, DAILY
  15. CHONDROITIN/GLUCOSAMINE [Concomitant]
     Indication: ARTHROPATHY
     Dosage: UNK, 2X/DAY

REACTIONS (1)
  - Drug ineffective [Unknown]
